FAERS Safety Report 5302877-4 (Version None)
Quarter: 2007Q2

REPORT INFORMATION
  Report Type: 
  Country: None (occurrence: None)
  Receive Date: 20070419
  Receipt Date: 20070419
  Transmission Date: 20071010
  Serious: Yes (Other)
  Sender: FDA-Public Use
  Company Number: None

PATIENT
  Age: 54 Year
  Sex: Male
  Weight: 83.9154 kg

DRUGS (2)
  1. PEGASYS [Suspect]
     Indication: HEPATITIS C
     Dosage: SQ
     Route: 058
  2. RIBAVIRIN [Suspect]
     Dosage: PO
     Route: 048

REACTIONS (1)
  - RED BLOOD CELL COUNT DECREASED [None]
